FAERS Safety Report 9426058 (Version 1)
Quarter: 2013Q3

REPORT INFORMATION
  Report Type: Spontaneous
  Country: DE (occurrence: DE)
  Receive Date: 20130730
  Receipt Date: 20130730
  Transmission Date: 20140515
  Serious: Yes (Other)
  Sender: FDA-Public Use
  Company Number: DE-ROCHE-1244017

PATIENT
  Age: 43 Year
  Sex: Male
  Weight: 76 kg

DRUGS (2)
  1. ZELBORAF [Suspect]
     Indication: MALIGNANT MELANOMA
     Route: 048
     Dates: start: 20130626, end: 20130718
  2. HYDROMORPHONE [Concomitant]
     Route: 048
     Dates: start: 201301

REACTIONS (8)
  - Erythema [Unknown]
  - Arthropathy [Unknown]
  - Cough [Recovering/Resolving]
  - Rash generalised [Recovering/Resolving]
  - Pruritus [Recovering/Resolving]
  - Depression [Recovering/Resolving]
  - Peripheral sensory neuropathy [Recovering/Resolving]
  - Fatigue [Recovering/Resolving]
